FAERS Safety Report 20974742 (Version 1)
Quarter: 2022Q2

REPORT INFORMATION
  Report Type: Spontaneous
  Country: GB (occurrence: GB)
  Receive Date: 20220617
  Receipt Date: 20220617
  Transmission Date: 20220721
  Serious: Yes (Other)
  Sender: FDA-Public Use
  Company Number: GB-BAUSCH-BL-2022-015241

PATIENT
  Age: 59 Year
  Sex: Male
  Weight: 108 kg

DRUGS (1)
  1. DILTIAZEM HYDROCHLORIDE [Suspect]
     Active Substance: DILTIAZEM HYDROCHLORIDE
     Indication: Hypertension
     Dosage: 300 MGS ONCE A DAY
     Route: 065
     Dates: start: 20220607

REACTIONS (8)
  - Hypertension [Recovering/Resolving]
  - Chest discomfort [Not Recovered/Not Resolved]
  - Cold sweat [Recovering/Resolving]
  - Sinus tachycardia [Recovering/Resolving]
  - Flushing [Recovering/Resolving]
  - Dry mouth [Recovering/Resolving]
  - Headache [Recovering/Resolving]
  - Palpitations [Not Recovered/Not Resolved]

NARRATIVE: CASE EVENT DATE: 20220607
